FAERS Safety Report 6091398-X (Version None)
Quarter: 2009Q1

REPORT INFORMATION
  Report Type: 
  Country: None (occurrence: None)
  Receive Date: 20090225
  Receipt Date: 20081215
  Transmission Date: 20090719
  Serious: No
  Sender: FDA-Public Use
  Company Number: A0760787A

PATIENT
  Sex: Female

DRUGS (3)
  1. VERAMYST [Suspect]
     Indication: DRUG USE FOR UNKNOWN INDICATION
  2. SYNTHROID [Concomitant]
  3. ADVAIR HFA [Concomitant]

REACTIONS (1)
  - BLOOD PRESSURE INCREASED [None]
